FAERS Safety Report 16150132 (Version 1)
Quarter: 2019Q2

REPORT INFORMATION
  Report Type: Spontaneous
  Country: US (occurrence: US)
  Receive Date: 20190402
  Receipt Date: 20190402
  Transmission Date: 20190711
  Serious: Yes (Life-Threatening)
  Sender: FDA-Public Use
  Company Number: None

PATIENT
  Age: 72 Year
  Sex: Female

DRUGS (4)
  1. WARFARIN [Suspect]
     Active Substance: WARFARIN
     Route: 048
  2. LATANOPROST. [Concomitant]
     Active Substance: LATANOPROST
     Dates: start: 20161027
  3. ATORVASTATIN 80MG [Concomitant]
     Active Substance: ATORVASTATIN
     Dates: start: 20160204
  4. TIMOLOL MAL 0.5% OPTH [Concomitant]
     Dates: start: 20170106

REACTIONS (2)
  - Product substitution issue [None]
  - International normalised ratio decreased [None]

NARRATIVE: CASE EVENT DATE: 20190326
